FAERS Safety Report 19280670 (Version 1)
Quarter: 2021Q2

REPORT INFORMATION
  Report Type: Spontaneous
  Country: IT (occurrence: IT)
  Receive Date: 20210520
  Receipt Date: 20210520
  Transmission Date: 20210717
  Serious: Yes (Other)
  Sender: FDA-Public Use
  Company Number: IT-ALLERGAN-2119288US

PATIENT
  Sex: Male

DRUGS (2)
  1. FOSFOMYCIN TROMETHAMINE ? BP [Suspect]
     Active Substance: FOSFOMYCIN TROMETHAMINE
     Indication: INFECTIOUS MONONUCLEOSIS
     Dosage: 1 DF
     Route: 048
  2. AMOXICILLIN/CLAVULANIC ACID [Suspect]
     Active Substance: AMOXICILLIN\CLAVULANIC ACID
     Indication: INFECTIOUS MONONUCLEOSIS
     Dosage: 2 DF, QD
     Route: 048

REACTIONS (6)
  - Toxic skin eruption [Recovering/Resolving]
  - Drug hypersensitivity [Recovering/Resolving]
  - Product use in unapproved indication [Unknown]
  - Rash [Recovering/Resolving]
  - Product use issue [Unknown]
  - Skin reaction [Recovering/Resolving]

NARRATIVE: CASE EVENT DATE: 20210311
